FAERS Safety Report 17446822 (Version 1)
Quarter: 2020Q1

REPORT INFORMATION
  Report Type: Spontaneous
  Country: US (occurrence: US)
  Receive Date: 20200221
  Receipt Date: 20200221
  Transmission Date: 20200409
  Serious: No
  Sender: FDA-Public Use
  Company Number: US-TEVA-2020-US-1187548

PATIENT
  Sex: Female

DRUGS (3)
  1. CLONAZEPAM TEVA [Suspect]
     Active Substance: CLONAZEPAM
     Route: 065
  2. CLONAZEPAM TEVA [Suspect]
     Active Substance: CLONAZEPAM
     Route: 065
  3. CLONAZEPAM TEVA [Suspect]
     Active Substance: CLONAZEPAM
     Route: 065

REACTIONS (3)
  - Product formulation issue [Unknown]
  - Drug ineffective [Unknown]
  - Anxiety [Not Recovered/Not Resolved]
